FAERS Safety Report 18095159 (Version 1)
Quarter: 2020Q3

REPORT INFORMATION
  Report Type: Report from Study
  Country: CA (occurrence: CA)
  Receive Date: 20200730
  Receipt Date: 20200730
  Transmission Date: 20201103
  Serious: Yes (Other)
  Sender: FDA-Public Use
  Company Number: NVSC2020CA212686

PATIENT
  Sex: Female

DRUGS (8)
  1. LYRICA [Concomitant]
     Active Substance: PREGABALIN
     Dosage: 1 DF, QD(AT BED TIME)(1 CAPSULE OF LYRICA 25 MG DOSE TOTAL IS 100 MG)
     Route: 048
     Dates: start: 20200520, end: 20200716
  2. NAPROXENE [Concomitant]
     Active Substance: NAPROXEN
     Indication: PRODUCT USED FOR UNKNOWN INDICATION
     Dosage: 1 DF(TWICE PER DAY AT BREAKFAST AND DINNER AS NEEDED)
     Route: 065
     Dates: start: 20181024, end: 20190523
  3. LEVOTHYROXINE. [Concomitant]
     Active Substance: LEVOTHYROXINE
     Indication: PRODUCT USED FOR UNKNOWN INDICATION
     Dosage: 1 DF, QD(IN THE MORNING)
     Route: 065
     Dates: start: 20200520, end: 20200716
  4. NAPROXENE [Concomitant]
     Active Substance: NAPROXEN
     Dosage: 1 DF(TWICE PER DAY AT BREAKFAST AND DINNER AS NEEDED PRN)
     Route: 065
     Dates: start: 20200403, end: 20200716
  5. VITAMIN D3 [Concomitant]
     Active Substance: CHOLECALCIFEROL
     Indication: PRODUCT USED FOR UNKNOWN INDICATION
     Dosage: 1 DF, QW
     Route: 065
     Dates: start: 20200520, end: 20200716
  6. OLMESARTAN MEDOXOMIL. [Suspect]
     Active Substance: OLMESARTAN MEDOXOMIL
     Indication: SECONDARY PROGRESSIVE MULTIPLE SCLEROSIS
     Dosage: 1 DF, QD(IN THE MORNING 30 MINUTES BEFORE BREAKFAST)
     Route: 065
     Dates: start: 20200520, end: 20200716
  7. LYRICA [Concomitant]
     Active Substance: PREGABALIN
     Indication: PRODUCT USED FOR UNKNOWN INDICATION
     Dosage: 1 DF, QD(AT BED TIME)(1 CAPSULE OF LYRICA 25 MG DOSE TOTAL IS 100 MG)
     Route: 048
     Dates: start: 20200403
  8. LORAZEPAM. [Suspect]
     Active Substance: LORAZEPAM
     Indication: SECONDARY PROGRESSIVE MULTIPLE SCLEROSIS
     Dosage: UNK(LET MELT UNDER THE TONGUE 2 TABLETS 30 MINUTES BEFORE TEST)
     Route: 065
     Dates: start: 20200424, end: 20200424

REACTIONS (2)
  - Expanded disability status scale score increased [Unknown]
  - General physical health deterioration [Unknown]
